FAERS Safety Report 8388297 (Version 2)
Quarter: 2014Q1

REPORT INFORMATION
  Report Type: Spontaneous
  Country: US (occurrence: US)
  Receive Date: 20120203
  Receipt Date: 20140228
  Transmission Date: 20141002
  Serious: No
  Sender: FDA-Public Use
  Company Number: US-GLAXOSMITHKLINE-A0936526A

PATIENT
  Sex: Female

DRUGS (2)
  1. LAMICTAL [Suspect]
     Indication: AFFECTIVE DISORDER
     Route: 065
  2. LAMOTRIGINE [Suspect]
     Indication: AFFECTIVE DISORDER
     Route: 048

REACTIONS (5)
  - Muscular weakness [Unknown]
  - Joint lock [Unknown]
  - Fall [Unknown]
  - Laceration [Unknown]
  - Drug ineffective [Unknown]
